FAERS Safety Report 18747425 (Version 2)
Quarter: 2021Q2

REPORT INFORMATION
  Report Type: Report from Study
  Country: DE (occurrence: DE)
  Receive Date: 20210115
  Receipt Date: 20210616
  Transmission Date: 20210717
  Serious: Yes (Death, Hospitalization, Other)
  Sender: FDA-Public Use
  Company Number: DE-TAKEDA-DE201817530

PATIENT
  Age: 49 Year
  Sex: Male
  Weight: 79 kg

DRUGS (22)
  1. ADVATE [Suspect]
     Active Substance: ANTIHEMOPHILIC FACTOR, HUMAN RECOMBINANT
     Indication: PROPHYLAXIS
     Dosage: 2000 IU, EVERY 3 DAY
     Route: 065
     Dates: start: 20110112
  2. ADVATE [Suspect]
     Active Substance: ANTIHEMOPHILIC FACTOR, HUMAN RECOMBINANT
     Indication: PROPHYLAXIS
     Dosage: 2000 IU, EVERY 3 DAY
     Route: 065
     Dates: start: 20110112
  3. PREDNISOLONE. [Concomitant]
     Active Substance: PREDNISOLONE
     Indication: COLITIS
     Dosage: 20 MILLIGRAM, QD
     Route: 048
  4. PANTOPRAZOL [Concomitant]
     Active Substance: PANTOPRAZOLE SODIUM
     Dosage: 20MG/1/D
     Route: 048
     Dates: start: 20200707
  5. TRUVADA [Concomitant]
     Active Substance: EMTRICITABINE\TENOFOVIR DISOPROXIL FUMARATE
     Indication: ANTIRETROVIRAL THERAPY
     Dosage: 200MG+ 300 MG
     Route: 048
     Dates: start: 20090928, end: 20171201
  6. ADVATE [Suspect]
     Active Substance: ANTIHEMOPHILIC FACTOR, HUMAN RECOMBINANT
     Dosage: 3000IU, EVERY 3 DAY
     Route: 065
     Dates: start: 20200615
  7. IBUPROFEN. [Concomitant]
     Active Substance: IBUPROFEN
     Indication: ANALGESIC THERAPY
     Dosage: 600 MG 1?3/D
     Route: 048
  8. ASPIRIN. [Concomitant]
     Active Substance: ASPIRIN
     Indication: ANTICOAGULANT THERAPY
     Dosage: 100MG/1/D
     Route: 048
     Dates: start: 20200707
  9. CYCLOCAPRON [Concomitant]
     Active Substance: TRANEXAMIC ACID
     Indication: CYST REMOVAL
  10. METOPROLOL. [Concomitant]
     Active Substance: METOPROLOL
     Indication: CARDIAC FAILURE
     Dosage: 47.5MG/0.5/D
     Route: 048
     Dates: start: 20200820
  11. ADVATE [Suspect]
     Active Substance: ANTIHEMOPHILIC FACTOR, HUMAN RECOMBINANT
     Dosage: 3000IU, EVERY 3 DAY
     Route: 065
     Dates: start: 20200615
  12. ARCOXIA [Concomitant]
     Active Substance: ETORICOXIB
     Indication: ANTIINFLAMMATORY THERAPY
     Dosage: 60 MILLIGRAM, QD
     Route: 048
  13. ADVATE [Suspect]
     Active Substance: ANTIHEMOPHILIC FACTOR, HUMAN RECOMBINANT
     Indication: PROPHYLAXIS
     Dosage: 2000 IU, EVERY 3 DAY
     Route: 065
     Dates: start: 20110112
  14. KALETRA [Concomitant]
     Active Substance: LOPINAVIR\RITONAVIR
     Indication: ANTIRETROVIRAL THERAPY
     Dosage: 100 MG + 25 MG, BID
     Route: 048
     Dates: start: 20060515, end: 20171201
  15. MAVIRET [Concomitant]
     Active Substance: GLECAPREVIR\PIBRENTASVIR
     Indication: ANTIVIRAL TREATMENT
     Dosage: 100MG + 40 MG
     Route: 048
     Dates: start: 20180418, end: 201807
  16. TRIUMEQ [Concomitant]
     Active Substance: ABACAVIR SULFATE\DOLUTEGRAVIR SODIUM\LAMIVUDINE
     Indication: ANTIRETROVIRAL THERAPY
     Dosage: 50/600/300MG
     Route: 048
     Dates: start: 20171202
  17. CYCLOCAPRON [Concomitant]
     Active Substance: TRANEXAMIC ACID
     Indication: HAEMORRHAGE PROPHYLAXIS
     Dosage: 500 MILLIGRAM, TID
     Route: 048
     Dates: start: 20150630, end: 20150706
  18. DOLORMIN INSTANT [Concomitant]
     Indication: ANALGESIC THERAPY
     Dosage: 400?600 MG 1?3/D
     Route: 048
  19. EZETIMIBA [Concomitant]
     Active Substance: EZETIMIBE
     Indication: HYPERLIPIDAEMIA
     Dosage: 10MG/1/D
     Route: 048
     Dates: start: 20200707
  20. TORSEMIDE. [Concomitant]
     Active Substance: TORSEMIDE
     Indication: CARDIAC FAILURE
     Dosage: 5MG/1/D
     Route: 048
     Dates: start: 20200820
  21. ADVATE [Suspect]
     Active Substance: ANTIHEMOPHILIC FACTOR, HUMAN RECOMBINANT
     Dosage: 3000IU, EVERY 3 DAY
     Route: 065
     Dates: start: 20200615
  22. ATORVASTATIN [Concomitant]
     Active Substance: ATORVASTATIN
     Indication: HYPERLIPIDAEMIA
     Dosage: 40MG/1/D
     Route: 048
     Dates: start: 20200707

REACTIONS (3)
  - Gastrointestinal haemorrhage [Recovered/Resolved]
  - Craniocerebral injury [Fatal]
  - Homicide [Fatal]

NARRATIVE: CASE EVENT DATE: 20180315
